FAERS Safety Report 9645706 (Version 1)
Quarter: 2013Q4

REPORT INFORMATION
  Report Type: Spontaneous
  Country: US (occurrence: US)
  Receive Date: 20131025
  Receipt Date: 20131025
  Transmission Date: 20140711
  Serious: Yes (Other)
  Sender: FDA-Public Use
  Company Number: US-BAYER-2013-127199

PATIENT
  Age: 61 Year
  Sex: Female
  Weight: 59.86 kg

DRUGS (8)
  1. BAYER ASPIRIN REGIMEN ADULT LOW STRENGTH [Suspect]
     Indication: ISCHAEMIC HEART DISEASE PROPHYLAXIS
     Dosage: 1 DF, QD
     Route: 048
     Dates: end: 20131008
  2. ZONEGRAN [Concomitant]
  3. LAMICTAL [Concomitant]
  4. CELEXA [Concomitant]
  5. TRAZODONE [Concomitant]
  6. VITAMIN B [Concomitant]
  7. VITAMIN D [Concomitant]
  8. CALCIUM [Concomitant]

REACTIONS (2)
  - Convulsion [Recovered/Resolved]
  - Aura [Recovered/Resolved]
